FAERS Safety Report 7241340-0 (Version None)
Quarter: 2011Q1

REPORT INFORMATION
  Report Type: 
  Country: None (occurrence: None)
  Receive Date: 20110120
  Receipt Date: 20110120
  Transmission Date: 20110831
  Serious: No
  Sender: FDA-Public Use
  Company Number: None

PATIENT
  Age: 83 Year
  Sex: Male
  Weight: 77.1115 kg

DRUGS (1)
  1. METOPROLOL TARTRATE [Suspect]
     Indication: CARDIAC DISORDER
     Dosage: 1 TABLET 2 A DAY PO
     Route: 048
     Dates: start: 20091013, end: 20100516

REACTIONS (10)
  - POOR PERIPHERAL CIRCULATION [None]
  - SKIN ULCER [None]
  - GANGRENE [None]
  - POST PROCEDURAL COMPLICATION [None]
  - BALANCE DISORDER [None]
  - LIMB INJURY [None]
  - TOE AMPUTATION [None]
  - IMPAIRED HEALING [None]
  - FALL [None]
  - HIP FRACTURE [None]
